FAERS Safety Report 4280587-2 (Version None)
Quarter: 2004Q1

REPORT INFORMATION
  Report Type: 
  Country: None (occurrence: None)
  Receive Date: 20040127
  Receipt Date: 20040120
  Transmission Date: 20041129
  Serious: Yes (Other)
  Sender: FDA-Public Use
  Company Number: 2004195134KR

PATIENT
  Age: 74 Year
  Sex: Female

DRUGS (3)
  1. METRONIDAZOLE [Suspect]
     Indication: FEMALE GENITAL-DIGESTIVE TRACT FISTULA
     Dosage: 1000 MG, DAILY, ORAL
     Route: 048
  2. MESALAMIE [Concomitant]
  3. CIPROFLOXACIN HCL [Concomitant]

REACTIONS (13)
  - BLOOD GLUCOSE INCREASED [None]
  - CEREBELLAR SYNDROME [None]
  - COGWHEEL RIGIDITY [None]
  - DIFFICULTY IN WALKING [None]
  - DYSARTHRIA [None]
  - DYSPHAGIA [None]
  - GAIT DISTURBANCE [None]
  - HEPATIC ENZYME INCREASED [None]
  - NEUROTOXICITY [None]
  - NUCLEAR MAGNETIC RESONANCE IMAGING BRAIN ABNORMAL [None]
  - POLYNEUROPATHY [None]
  - TOXIC INDUCED ENCEPHALOPATHY [None]
  - VITAMIN B12 DECREASED [None]
